FAERS Safety Report 10033423 (Version 3)
Quarter: 2014Q1

REPORT INFORMATION
  Report Type: Spontaneous
  Country: JP (occurrence: JP)
  Receive Date: 20140325
  Receipt Date: 20140325
  Transmission Date: 20141002
  Serious: Yes (Hospitalization, Other)
  Sender: FDA-Public Use
  Company Number: JP-PFIZER INC-2014070850

PATIENT
  Age: 79 Year
  Sex: Female
  Weight: 54.8 kg

DRUGS (3)
  1. AZULFIDINE EN [Suspect]
     Indication: RHEUMATOID ARTHRITIS
     Dosage: 500 MG, 2X/DAY
     Route: 048
     Dates: start: 20130320, end: 20140311
  2. EDIROL [Concomitant]
     Dosage: 0.5 UG, 1X/DAY
     Route: 048
     Dates: start: 20130320, end: 20140311
  3. ZANTAC [Concomitant]
     Dosage: 150 MG, 1X/DAY
     Route: 048
     Dates: start: 20130322

REACTIONS (2)
  - Nephrotic syndrome [Unknown]
  - Influenza [Recovering/Resolving]
